FAERS Safety Report 15896343 (Version 2)
Quarter: 2019Q1

REPORT INFORMATION
  Report Type: Spontaneous
  Country: US (occurrence: US)
  Receive Date: 20190131
  Receipt Date: 20190226
  Transmission Date: 20190417
  Serious: Yes (Other)
  Sender: FDA-Public Use
  Company Number: PHEH2019US004327

PATIENT
  Sex: Female

DRUGS (2)
  1. CILOXAN [Suspect]
     Active Substance: CIPROFLOXACIN HYDROCHLORIDE
     Indication: CONJUNCTIVITIS BACTERIAL
     Route: 047
  2. CILOXAN [Suspect]
     Active Substance: CIPROFLOXACIN HYDROCHLORIDE
     Indication: KERATITIS

REACTIONS (2)
  - Drug ineffective [Unknown]
  - Acanthamoeba infection [Unknown]
